FAERS Safety Report 4403570-2 (Version None)
Quarter: 2004Q3

REPORT INFORMATION
  Report Type: 
  Country: None (occurrence: None)
  Receive Date: 20040721
  Receipt Date: 20040719
  Transmission Date: 20050211
  Serious: Yes (Hospitalization)
  Sender: FDA-Public Use
  Company Number: US-GLAXOSMITHKLINE-A0518823A

PATIENT
  Sex: Female

DRUGS (4)
  1. PAXIL CR [Suspect]
     Indication: PANIC DISORDER
     Dosage: 75MG PER DAY
     Route: 048
  2. TYLENOL [Suspect]
     Dosage: 30TAB PER DAY
  3. COCAINE [Concomitant]
  4. PROZAC [Concomitant]

REACTIONS (7)
  - CONDITION AGGRAVATED [None]
  - DRUG EXPOSURE DURING PREGNANCY [None]
  - INTENTIONAL OVERDOSE [None]
  - OVERDOSE [None]
  - PANIC REACTION [None]
  - PREGNANCY [None]
  - THERAPEUTIC RESPONSE DECREASED [None]
